FAERS Safety Report 23936051 (Version 1)
Quarter: 2024Q2

REPORT INFORMATION
  Report Type: Report from Study
  Country: DE (occurrence: DE)
  Receive Date: 20240604
  Receipt Date: 20240604
  Transmission Date: 20240716
  Serious: Yes (Hospitalization)
  Sender: FDA-Public Use
  Company Number: DE-TAKEDA-2022TUS064452

PATIENT
  Age: 44 Year
  Sex: Female

DRUGS (10)
  1. TEDUGLUTIDE [Suspect]
     Active Substance: TEDUGLUTIDE
     Indication: Short-bowel syndrome
     Dosage: 3 MILLIGRAM, QD
     Route: 042
     Dates: start: 20220804, end: 20220824
  2. TEDUGLUTIDE [Suspect]
     Active Substance: TEDUGLUTIDE
     Indication: Short-bowel syndrome
     Dosage: 3 MILLIGRAM, QD
     Route: 042
     Dates: start: 20220804, end: 20220824
  3. TEDUGLUTIDE [Suspect]
     Active Substance: TEDUGLUTIDE
     Indication: Short-bowel syndrome
     Dosage: 3 MILLIGRAM, QD
     Route: 042
     Dates: start: 20220804, end: 20220824
  4. TEDUGLUTIDE [Suspect]
     Active Substance: TEDUGLUTIDE
     Indication: Short-bowel syndrome
     Dosage: 3 MILLIGRAM, QD
     Route: 042
     Dates: start: 20220804, end: 20220824
  5. TAUROLIDINE [Concomitant]
     Active Substance: TAUROLIDINE
     Indication: Mental disorder
     Dosage: UNK
     Route: 042
     Dates: start: 2014
  6. FENTANYL [Concomitant]
     Active Substance: FENTANYL\FENTANYL CITRATE
     Indication: Product used for unknown indication
     Dosage: 100 MICROGRAM, QOD
     Route: 048
  7. FENTANYL [Concomitant]
     Active Substance: FENTANYL\FENTANYL CITRATE
     Dosage: 50 MICROGRAM, 2/WEEK
     Route: 062
     Dates: start: 20240301
  8. Unacid [Concomitant]
     Indication: Device related infection
     Dosage: 750 MILLIGRAM, BID
     Route: 048
     Dates: start: 20240408, end: 20240424
  9. BROMAZEPAM [Concomitant]
     Active Substance: BROMAZEPAM
     Indication: Device related infection
     Dosage: 1.5 MILLIGRAM, TID
     Route: 048
     Dates: start: 20240303
  10. HEPARIN [Concomitant]
     Active Substance: HEPARIN SODIUM
     Indication: Product used for unknown indication
     Dosage: UNK
     Route: 042
     Dates: start: 2014

REACTIONS (2)
  - Sensation of foreign body [Recovered/Resolved]
  - Injection site reaction [Recovered/Resolved]

NARRATIVE: CASE EVENT DATE: 20220804
